FAERS Safety Report 22111209 (Version 4)
Quarter: 2023Q2

REPORT INFORMATION
  Report Type: Spontaneous
  Country: BR (occurrence: BR)
  Receive Date: 20230317
  Receipt Date: 20230404
  Transmission Date: 20230722
  Serious: Yes (Other)
  Sender: FDA-Public Use
  Company Number: BR-009507513-2303BRA005501

PATIENT
  Age: 44 Year
  Sex: Female

DRUGS (10)
  1. PEMBROLIZUMAB [Suspect]
     Active Substance: PEMBROLIZUMAB
     Indication: Triple negative breast cancer
     Dosage: EVERY 21 DAYS
  2. PEMBROLIZUMAB [Suspect]
     Active Substance: PEMBROLIZUMAB
     Dosage: EVERY 21 DAYS;CYCLE 3
  3. PEMBROLIZUMAB [Suspect]
     Active Substance: PEMBROLIZUMAB
     Dosage: EVERY 21 DAYS;8TH CYCLE
     Dates: start: 20221214
  4. CARBOPLATIN [Suspect]
     Active Substance: CARBOPLATIN
     Indication: Triple negative breast cancer
     Dosage: UNK, QW
  5. CARBOPLATIN [Suspect]
     Active Substance: CARBOPLATIN
     Dosage: 4TH DENSE DOSE
     Dates: start: 20221125
  6. PACLITAXEL [Suspect]
     Active Substance: PACLITAXEL
     Indication: Triple negative breast cancer
     Dosage: UNK, QW
  7. PACLITAXEL [Suspect]
     Active Substance: PACLITAXEL
     Dosage: UNK;12TH WEEK
     Dates: start: 20220930
  8. TAXOL [Suspect]
     Active Substance: PACLITAXEL
     Indication: Triple negative breast cancer
     Dosage: 12TH WEEK
  9. TAXOL [Suspect]
     Active Substance: PACLITAXEL
     Dosage: 12TH WEEK
  10. ADRIAMYCIN [Suspect]
     Active Substance: DOXORUBICIN HYDROCHLORIDE
     Indication: Triple negative breast cancer
     Dosage: 4TH DENSE DOSE
     Dates: start: 20221125

REACTIONS (4)
  - Malignant neoplasm progression [Unknown]
  - Neutropenia [Unknown]
  - Transaminases increased [Unknown]
  - Therapy partial responder [Unknown]
